FAERS Safety Report 8966233 (Version 4)
Quarter: 2013Q1

REPORT INFORMATION
  Report Type: Report from Study
  Country: DE (occurrence: DE)
  Receive Date: 20121214
  Receipt Date: 20130110
  Transmission Date: 20140127
  Serious: Yes (Life-Threatening, Hospitalization, Other)
  Sender: FDA-Public Use
  Company Number: DE-GENZYME-CLOF-1002428

PATIENT
  Age: 62 Year
  Sex: Male
  Weight: 76 kg

DRUGS (14)
  1. EVOLTRA [Suspect]
     Indication: ACUTE MYELOID LEUKAEMIA
     Dosage: 30 MG/M2, QD (1ST INDUCTION THERAPY)
     Route: 042
     Dates: start: 20121106, end: 20121110
  2. EVOLTRA [Suspect]
     Dosage: 30 MG/M2, QD (SECOND INDUCTION THERAPY)
     Route: 042
     Dates: start: 20121214, end: 20121218
  3. CYTARABINE [Suspect]
     Indication: ACUTE MYELOID LEUKAEMIA
     Dosage: 750 MG/M2, QD (FIRST INDUCTION THERAPY)
     Route: 042
     Dates: start: 20121106, end: 20121110
  4. CYTARABINE [Suspect]
     Dosage: 750 MG/M2, QD (SECOND INDUCTION THERAPY)
     Route: 042
     Dates: start: 20121214, end: 20121218
  5. IDARUBICIN [Suspect]
     Indication: ACUTE MYELOID LEUKAEMIA
     Dosage: 6 MG/M2, QD (FIRST INDUCTION THERAPY)
     Route: 042
     Dates: start: 20121106, end: 20121106
  6. IDARUBICIN [Suspect]
     Dosage: 6 MG/M2, QD (FIRST INDUCTION THERAPY)
     Route: 042
     Dates: start: 20121108, end: 20121108
  7. IDARUBICIN [Suspect]
     Dosage: 6 MG/M2, ONCE (SECOND INDUCTION THERAPY)
     Route: 042
     Dates: start: 20121214, end: 20121214
  8. IDARUBICIN [Suspect]
     Dosage: 6 MG/M2, ONCE (SECOND INDUCTION THERAPY)
     Route: 042
     Dates: start: 20121216, end: 20121216
  9. VORICONAZOLE [Concomitant]
     Indication: PRODUCT USED FOR UNKNOWN INDICATION
     Dosage: 200 MG, BID
     Route: 048
     Dates: start: 20121122
  10. LINEZOLID [Concomitant]
     Indication: PRODUCT USED FOR UNKNOWN INDICATION
     Dosage: 600 MG, BID
     Route: 048
     Dates: start: 20121122
  11. KABIVEN [Concomitant]
     Indication: PRODUCT USED FOR UNKNOWN INDICATION
     Dosage: 2400 ML, QD
     Route: 042
     Dates: start: 20121112, end: 20121123
  12. PANTOPRAZOLE [Concomitant]
     Indication: PRODUCT USED FOR UNKNOWN INDICATION
     Dosage: 40 MG, QD
     Route: 048
     Dates: start: 20121102
  13. SALINE [Concomitant]
     Indication: PRODUCT USED FOR UNKNOWN INDICATION
     Dosage: 2000 ML, QD
     Route: 042
     Dates: start: 20121103, end: 20121112
  14. ALIZAPRIDE [Concomitant]
     Indication: PRODUCT USED FOR UNKNOWN INDICATION
     Dosage: 100 MG, BID
     Route: 042
     Dates: start: 20121106, end: 20121111

REACTIONS (4)
  - Infusion site thrombosis [Recovered/Resolved with Sequelae]
  - Sepsis [Not Recovered/Not Resolved]
  - Bone marrow failure [Unknown]
  - Abscess limb [Unknown]
